FAERS Safety Report 19425786 (Version 3)
Quarter: 2021Q3

REPORT INFORMATION
  Report Type: Spontaneous
  Country: GB (occurrence: GB)
  Receive Date: 20210616
  Receipt Date: 20210818
  Transmission Date: 20211014
  Serious: Yes (Other)
  Sender: FDA-Public Use
  Company Number: GB-SA-2021SA194329

PATIENT
  Age: 50 Year
  Sex: Female

DRUGS (26)
  1. DOCETAXEL. [Suspect]
     Active Substance: DOCETAXEL
     Indication: BREAST CANCER METASTATIC
     Dosage: 120 MG, Q3W
     Route: 042
     Dates: start: 20160314, end: 20160810
  2. BUSCOPAN [Concomitant]
     Active Substance: BUTYLSCOPOLAMINE BROMIDE
     Dosage: 80 MG, QD
     Route: 048
     Dates: start: 20160625
  3. OMEPRAZOLE. [Concomitant]
     Active Substance: OMEPRAZOLE
     Indication: METASTASES TO CENTRAL NERVOUS SYSTEM
     Dosage: 20 MG, BID
     Route: 048
     Dates: start: 201909
  4. PARACETAMOL [Concomitant]
     Active Substance: ACETAMINOPHEN
     Indication: MUSCULOSKELETAL PAIN
     Dosage: 1 G, PRN
     Route: 048
     Dates: start: 20160612
  5. PERTUZUMAB. [Suspect]
     Active Substance: PERTUZUMAB
     Dosage: 840 MG, Q3W (INITIAL LOADING DOSE, CUMULATIVE DOSE 66801.66)
     Route: 042
     Dates: start: 20160425, end: 20160425
  6. DOCUSATE [Concomitant]
     Active Substance: DOCUSATE
     Indication: CONSTIPATION
     Dosage: 100 MG
     Route: 048
     Dates: start: 20210226
  7. LETROZOLE. [Suspect]
     Active Substance: LETROZOLE
     Indication: BREAST CANCER METASTATIC
     Dosage: 2.5 UG, QD
     Route: 048
     Dates: start: 20190709
  8. TRASTUZUMAB. [Suspect]
     Active Substance: TRASTUZUMAB
     Indication: BREAST CANCER METASTATIC
     Dosage: 600 MG, Q3W
     Route: 058
     Dates: start: 20160425
  9. PERTUZUMAB. [Suspect]
     Active Substance: PERTUZUMAB
     Dosage: 420 MG, Q3W (MAINTENANCE DOSE; CUMULATIVE DOSE 32980.832 MG)
     Route: 042
     Dates: start: 20160516
  10. CODEINE [Concomitant]
     Active Substance: CODEINE
     Indication: PHANTOM LIMB SYNDROME
     Dosage: 30 MG, BID
     Route: 048
  11. DEXAMETHASONE. [Concomitant]
     Active Substance: DEXAMETHASONE
     Indication: HEADACHE
     Dosage: 4 MG, BID
     Route: 048
     Dates: start: 201909, end: 20191010
  12. DEXAMETHASONE. [Concomitant]
     Active Substance: DEXAMETHASONE
     Dosage: 0.5 MG, BID (CUMULATIVE DOSE TO FIRST REACTION: 83 MG)
     Route: 048
     Dates: start: 20191224, end: 202002
  13. ORAMORPH SR SUSTAINED RELEASE [Concomitant]
     Active Substance: MORPHINE SULFATE
     Indication: METASTASES TO CENTRAL NERVOUS SYSTEM
     Dosage: UNK UNK, PRN
     Route: 048
     Dates: start: 20210311
  14. PERTUZUMAB. [Suspect]
     Active Substance: PERTUZUMAB
     Indication: BREAST CANCER METASTATIC
     Dosage: 840 MG, Q3W (INITIAL LOADING DOSE, CUMULATIVE DOSE 66801.66)
     Route: 042
     Dates: start: 20160425, end: 20160425
  15. IBUPROFEN. [Concomitant]
     Active Substance: IBUPROFEN
     Indication: MUSCULOSKELETAL PAIN
     Dosage: 200 MG, PRN
     Route: 048
     Dates: start: 20160612
  16. TAMOXIFEN CITRATE. [Suspect]
     Active Substance: TAMOXIFEN CITRATE
     Indication: BREAST CANCER METASTATIC
     Dosage: 20 MG, QD
     Route: 048
     Dates: start: 20161010, end: 20190708
  17. PERTUZUMAB. [Suspect]
     Active Substance: PERTUZUMAB
     Dosage: 420 MG, Q3W (MAINTENANCE DOSE; CUMULATIVE DOSE 32980.832 MG)
     Route: 042
     Dates: start: 20160516
  18. AMITRIPTYLINE [Concomitant]
     Active Substance: AMITRIPTYLINE
     Indication: METASTASES TO CENTRAL NERVOUS SYSTEM
     Dosage: 10 MG, QD
     Route: 048
     Dates: start: 20210407
  19. DEXAMETHASONE. [Concomitant]
     Active Substance: DEXAMETHASONE
     Dosage: 1.5 MG, QD (CUMULATIVE DOSE TO FIRST REACTION: 540MG)
     Route: 048
     Dates: start: 20191126, end: 20191203
  20. BUSCOPAN [Concomitant]
     Active Substance: BUTYLSCOPOLAMINE BROMIDE
     Dosage: 20 MG, QID
     Route: 048
     Dates: start: 20160625
  21. DEXAMETHASONE. [Concomitant]
     Active Substance: DEXAMETHASONE
     Indication: METASTASES TO CENTRAL NERVOUS SYSTEM
     Dosage: 2 MG, QD (CUMULATIVE DOSE TO FIRST REACTION: 352 MG)
     Route: 048
     Dates: start: 20191011, end: 20191125
  22. DEXAMETHASONE. [Concomitant]
     Active Substance: DEXAMETHASONE
     Dosage: 4 MG, QD (CUMULATIVE DOSE TO FIRST REACTION: 648.1667 MG)
     Route: 048
     Dates: start: 20200611
  23. DEXAMETHASONE. [Concomitant]
     Active Substance: DEXAMETHASONE
     Dosage: 4 MG, QD (CUMULATIVE DOSE TO FIRST REACTION: 352 MG)
     Route: 048
     Dates: start: 20210216
  24. DEXAMETHASONE. [Concomitant]
     Active Substance: DEXAMETHASONE
     Dosage: 1 MG, BID (CUMULATIVE DOSE TO FIRST REACTION: 176 MG)
     Route: 048
     Dates: start: 20191204, end: 20191223
  25. CODEINE [Concomitant]
     Active Substance: CODEINE
     Dosage: 60 MG, QD
     Route: 048
     Dates: start: 20160919
  26. LAXIDO [Concomitant]
     Active Substance: POLYETHYLENE GLYCOL 3350\POTASSIUM CHLORIDE\SODIUM BICARBONATE\SODIUM CHLORIDE
     Dosage: UNK UNK, QD
     Route: 048
     Dates: start: 20160627

REACTIONS (8)
  - Headache [Not Recovered/Not Resolved]
  - Incorrect route of product administration [Unknown]
  - Acarodermatitis [Recovered/Resolved]
  - Constipation [Unknown]
  - Urinary tract infection [Recovered/Resolved]
  - Vision blurred [Not Recovered/Not Resolved]
  - Skin infection [Unknown]
  - Cellulitis [Unknown]

NARRATIVE: CASE EVENT DATE: 20201120
